FAERS Safety Report 10439557 (Version 1)
Quarter: 2014Q3

REPORT INFORMATION
  Report Type: Spontaneous
  Country: US (occurrence: US)
  Receive Date: 20140908
  Receipt Date: 20140908
  Transmission Date: 20150326
  Serious: No
  Sender: FDA-Public Use
  Company Number: US-BRISTOL-MYERS SQUIBB COMPANY-19969260

PATIENT
  Age: 78 Year
  Sex: Female
  Weight: 83.44 kg

DRUGS (2)
  1. ABILIFY [Suspect]
     Active Substance: ARIPIPRAZOLE
     Route: 048
     Dates: start: 201312
  2. RISPERDAL [Concomitant]
     Active Substance: RISPERIDONE
     Dosage: 1 OR 2DAYS
     Dates: start: 201312

REACTIONS (1)
  - Dizziness [Unknown]

NARRATIVE: CASE EVENT DATE: 201312
